FAERS Safety Report 26195261 (Version 2)
Quarter: 2025Q4

REPORT INFORMATION
  Report Type: Spontaneous
  Country: JP (occurrence: JP)
  Receive Date: 20251224
  Receipt Date: 20251230
  Transmission Date: 20260117
  Serious: Yes (Hospitalization, Other)
  Sender: ARDELYX
  Company Number: JP-ARDELYX-2025ARDX009423

PATIENT

DRUGS (1)
  1. TENAPANOR HYDROCHLORIDE [Suspect]
     Active Substance: TENAPANOR HYDROCHLORIDE
     Indication: Blood phosphorus increased
     Dosage: UNK
     Route: 048

REACTIONS (1)
  - Myocardial infarction [Unknown]
